FAERS Safety Report 18124308 (Version 1)
Quarter: 2020Q3

REPORT INFORMATION
  Report Type: Report from Study
  Country: US (occurrence: US)
  Receive Date: 20200807
  Receipt Date: 20200807
  Transmission Date: 20201103
  Serious: Yes (Other)
  Sender: FDA-Public Use
  Company Number: US-JNJFOC-20191033272

PATIENT
  Age: 78 Year
  Sex: Male

DRUGS (3)
  1. IMBRUVICA [Suspect]
     Active Substance: IBRUTINIB
     Indication: CHRONIC LYMPHOCYTIC LEUKAEMIA
     Route: 048
  2. IMBRUVICA [Suspect]
     Active Substance: IBRUTINIB
     Indication: CHRONIC LYMPHOCYTIC LEUKAEMIA
     Dosage: 420 MG, QD
     Route: 048
     Dates: start: 20190906
  3. LEVAQUIN [Suspect]
     Active Substance: LEVOFLOXACIN
     Indication: PRODUCT USED FOR UNKNOWN INDICATION
     Route: 065

REACTIONS (13)
  - Hepatic cirrhosis [Unknown]
  - Muscular weakness [Unknown]
  - Joint injury [Unknown]
  - Somnolence [Unknown]
  - Contusion [Unknown]
  - Asthenia [Unknown]
  - Dementia [Unknown]
  - Arthralgia [Unknown]
  - Parkinson^s disease [Unknown]
  - Diarrhoea [Not Recovered/Not Resolved]
  - Diabetes mellitus [Unknown]
  - Laboratory test abnormal [Recovering/Resolving]
  - Fall [Unknown]
